FAERS Safety Report 8862583 (Version 2)
Quarter: 2012Q4

REPORT INFORMATION
  Report Type: 
  Country: MX (occurrence: MX)
  Receive Date: 20121026
  Receipt Date: 20121029
  Transmission Date: 20130627
  Serious: Yes (Death)
  Sender: FDA-Public Use
  Company Number: MX-JNJFOC-20121012439

PATIENT
  Sex: Female

DRUGS (10)
  1. DOXORUBICIN [Suspect]
     Indication: LYMPHOMA
     Route: 042
  2. CYCLOPHOSPHAMIDE [Suspect]
     Indication: LYMPHOMA
     Route: 065
  3. VINCRISTINE [Suspect]
     Indication: LYMPHOMA
     Route: 065
  4. PREDNISONE [Suspect]
     Indication: LYMPHOMA
     Route: 065
  5. RITUXIMAB [Suspect]
     Indication: LYMPHOMA
     Route: 065
  6. BLEOMYCIN [Suspect]
     Indication: LYMPHOMA
     Route: 065
  7. VINBLASTINE [Suspect]
     Indication: LYMPHOMA
     Route: 065
  8. DACARBAZINE [Suspect]
     Indication: LYMPHOMA
     Route: 065
  9. NITROGEN MUSTARD [Suspect]
     Indication: LYMPHOMA
     Route: 065
  10. PROCARBAZINE [Suspect]
     Indication: LYMPHOMA
     Route: 065

REACTIONS (2)
  - Disease progression [Fatal]
  - Exposure during pregnancy [Recovered/Resolved]
